FAERS Safety Report 5333306-2 (Version None)
Quarter: 2007Q2

REPORT INFORMATION
  Report Type: 
  Country: None (occurrence: None)
  Receive Date: 20070524
  Receipt Date: 20070516
  Transmission Date: 20071010
  Serious: Yes (Other)
  Sender: FDA-Public Use
  Company Number: CA-JNJFOC-20070504392

PATIENT
  Sex: Female

DRUGS (2)
  1. TRAMACET [Suspect]
     Indication: PAIN
     Route: 065
  2. LYRICA [Suspect]
     Indication: DRUG USE FOR UNKNOWN INDICATION
     Route: 065

REACTIONS (1)
  - HYPOAESTHESIA FACIAL [None]
